FAERS Safety Report 7678783-7 (Version None)
Quarter: 2011Q3

REPORT INFORMATION
  Report Type: 
  Country: None (occurrence: None)
  Receive Date: 20110811
  Receipt Date: 20110803
  Transmission Date: 20111222
  Serious: Yes (Other)
  Sender: FDA-Public Use
  Company Number: US-RB-000770-10

PATIENT
  Sex: Male

DRUGS (13)
  1. CRYSTAL METHAMPHETAMINE [Suspect]
     Indication: PRODUCT USED FOR UNKNOWN INDICATION
     Dosage: DOSING DETAILS UNKNOWN
     Route: 065
  2. ZYVOX [Suspect]
     Indication: STAPHYLOCOCCAL INFECTION
     Dosage: DOSING DETAILS UNKNOWN
     Route: 065
     Dates: start: 20090401, end: 20090501
  3. SUBOXONE [Suspect]
     Indication: DRUG DEPENDENCE
     Route: 060
     Dates: start: 20021001, end: 20101001
  4. ADDERALL 5 [Suspect]
     Indication: DEPRESSION
     Dosage: TOOK 20 MG TWICE DAILY
     Route: 048
  5. SUBOXONE [Suspect]
     Dosage: SUBLINGUAL FILM
     Route: 060
     Dates: start: 20110101
  6. KLONOPIN [Suspect]
     Indication: ANXIETY
     Dosage: TAKES 2 MG TWICE DAILY
     Route: 048
  7. SEROQUEL [Suspect]
     Indication: ANXIETY
     Dosage: TOOK 50-150 MG DAILY
     Route: 048
     Dates: start: 20100101, end: 20100901
  8. SUBOXONE [Suspect]
     Indication: DRUG DEPENDENCE
     Route: 060
     Dates: start: 20101001
  9. ZOLOFT [Suspect]
     Indication: PRODUCT USED FOR UNKNOWN INDICATION
     Dosage: DOSING DETAILS UNKNOWN
     Route: 065
  10. PRISTIQ [Suspect]
     Indication: DEPRESSION
     Route: 065
     Dates: start: 20090201, end: 20090501
  11. LUVOX CR [Suspect]
     Indication: DEPRESSION
     Route: 065
     Dates: start: 20090201, end: 20090501
  12. ADDERALL 5 [Suspect]
     Indication: ATTENTION DEFICIT/HYPERACTIVITY DISORDER
     Dosage: TOOK 20 MG TWICE DAILY
     Route: 048
  13. SEROQUEL [Suspect]
     Indication: CHANGE IN SUSTAINED ATTENTION
     Dosage: TOOK 50-150 MG DAILY
     Route: 048
     Dates: start: 20100101, end: 20100901

REACTIONS (35)
  - ROAD TRAFFIC ACCIDENT [None]
  - HUMERUS FRACTURE [None]
  - ANXIETY [None]
  - FALL [None]
  - BACK PAIN [None]
  - DRUG INEFFECTIVE [None]
  - FOLLICULITIS [None]
  - SEROTONIN SYNDROME [None]
  - FUNGAL SKIN INFECTION [None]
  - SPINAL FRACTURE [None]
  - PSYCHOMOTOR HYPERACTIVITY [None]
  - DRUG DIVERSION [None]
  - LIMB DISCOMFORT [None]
  - WEIGHT INCREASED [None]
  - LIPOHYPERTROPHY [None]
  - SPINAL COLUMN INJURY [None]
  - ALOPECIA [None]
  - OEDEMA PERIPHERAL [None]
  - FATIGUE [None]
  - HALLUCINATIONS, MIXED [None]
  - SKIN BACTERIAL INFECTION [None]
  - DECREASED APPETITE [None]
  - ABDOMINAL PAIN UPPER [None]
  - DRUG INTERACTION [None]
  - LABORATORY TEST ABNORMAL [None]
  - INSOMNIA [None]
  - GASTROINTESTINAL DISORDER [None]
  - STAPHYLOCOCCAL INFECTION [None]
  - AGGRESSION [None]
  - MANIA [None]
  - BLOOD PRESSURE INCREASED [None]
  - HEART RATE INCREASED [None]
  - CHANGE IN SUSTAINED ATTENTION [None]
  - PSYCHOTIC DISORDER [None]
  - DRUG WITHDRAWAL SYNDROME [None]
